FAERS Safety Report 5369291-7 (Version None)
Quarter: 2007Q2

REPORT INFORMATION
  Report Type: 
  Country: None (occurrence: None)
  Receive Date: 20070625
  Receipt Date: 20070620
  Transmission Date: 20071010
  Serious: Yes (Other)
  Sender: FDA-Public Use
  Company Number: US-ELI_LILLY_AND_COMPANY-US200706004406

PATIENT
  Age: 12 Year
  Sex: Male
  Weight: 39.909 kg

DRUGS (3)
  1. STRATTERA [Suspect]
     Indication: PSYCHOMOTOR HYPERACTIVITY
     Dosage: 18 MG, DAILY (1/D)
     Route: 048
     Dates: start: 20070301
  2. STRATTERA [Suspect]
     Dosage: 36 MG, DAILY (1/D)
     Route: 048
  3. STRATTERA [Suspect]
     Dosage: 60 MG, DAILY (1/D)
     Route: 048
     Dates: end: 20070619

REACTIONS (1)
  - BLINDNESS [None]
